FAERS Safety Report 6661008-9 (Version None)
Quarter: 2010Q1

REPORT INFORMATION
  Report Type: 
  Country: None (occurrence: None)
  Receive Date: 20100331
  Receipt Date: 20100323
  Transmission Date: 20100710
  Serious: Yes (Other)
  Sender: FDA-Public Use
  Company Number: JP-ROCHE-690780

PATIENT
  Sex: Female
  Weight: 40 kg

DRUGS (5)
  1. ACTEMRA [Suspect]
     Indication: RHEUMATOID ARTHRITIS
     Route: 041
     Dates: start: 20100112, end: 20100112
  2. ACTEMRA [Suspect]
     Route: 041
     Dates: start: 20100205
  3. NORVASC [Concomitant]
     Route: 048
     Dates: start: 20090504
  4. FAMOTIDINE [Concomitant]
     Route: 048
     Dates: start: 20090504
  5. FUROSEMIDE [Concomitant]
     Route: 048
     Dates: start: 20090504

REACTIONS (1)
  - TUBERCULOSIS [None]
